FAERS Safety Report 5837552-0 (Version None)
Quarter: 2008Q3

REPORT INFORMATION
  Report Type: 
  Country: None (occurrence: None)
  Receive Date: 20080807
  Receipt Date: 20080730
  Transmission Date: 20090109
  Serious: Yes (Other)
  Sender: FDA-Public Use
  Company Number: US-PFIZER INC-2008063669

PATIENT
  Sex: Female
  Weight: 90.7 kg

DRUGS (3)
  1. LYRICA [Suspect]
     Indication: NEURALGIA
     Route: 048
     Dates: start: 20070901, end: 20080601
  2. LYRICA [Suspect]
     Indication: NEUROPATHY PERIPHERAL
  3. ANALGESICS [Concomitant]

REACTIONS (6)
  - FEELING ABNORMAL [None]
  - HALLUCINATION [None]
  - ILL-DEFINED DISORDER [None]
  - MENTAL DISORDER [None]
  - STAPHYLOCOCCAL INFECTION [None]
  - UNEVALUABLE EVENT [None]
